FAERS Safety Report 8076640-8 (Version None)
Quarter: 2012Q1

REPORT INFORMATION
  Report Type: 
  Country: None (occurrence: None)
  Receive Date: 20120127
  Receipt Date: 20120118
  Transmission Date: 20120608
  Serious: Yes (Other)
  Sender: FDA-Public Use
  Company Number: GXBR2012US000541

PATIENT
  Sex: Female

DRUGS (1)
  1. PHENDIMETRAZINE TARTRATE [Suspect]
     Dosage: UNK DF, UNK

REACTIONS (1)
  - HEART VALVE INCOMPETENCE [None]
